FAERS Safety Report 9190957 (Version 9)
Quarter: 2013Q3

REPORT INFORMATION
  Report Type: Report from Study
  Country: CA (occurrence: CA)
  Receive Date: 20130326
  Receipt Date: 20130806
  Transmission Date: 20140515
  Serious: Yes (Death, Other)
  Sender: FDA-Public Use
  Company Number: CA-ROCHE-1205864

PATIENT
  Age: 47 Year
  Sex: Female
  Weight: 90 kg

DRUGS (16)
  1. AVASTIN [Suspect]
     Indication: OLIGODENDROGLIOMA
     Route: 042
     Dates: start: 20130307, end: 20130712
  2. AVASTIN [Suspect]
     Route: 042
     Dates: start: 20130628
  3. IRINOTECAN [Suspect]
     Indication: OLIGODENDROGLIOMA
     Route: 042
     Dates: start: 20130622
  4. TYLENOL [Concomitant]
     Indication: PREMEDICATION
     Route: 048
     Dates: start: 20130307, end: 20130724
  5. BENADRYL [Concomitant]
     Indication: PREMEDICATION
     Route: 048
     Dates: start: 20130307, end: 20130712
  6. SOLU-MEDROL [Concomitant]
     Indication: PREMEDICATION
     Route: 042
     Dates: start: 20130307, end: 20130712
  7. DECADRON [Concomitant]
     Route: 065
  8. DECADRON [Concomitant]
     Route: 065
  9. PANTOLOC [Concomitant]
     Route: 065
  10. EFFEXOR [Concomitant]
     Route: 065
  11. LYRICA [Concomitant]
     Route: 065
  12. KEPPRA [Concomitant]
     Route: 065
  13. FENTANYL [Concomitant]
     Route: 065
  14. OXYBUTYNIN [Concomitant]
     Route: 065
  15. NAPROXEN [Concomitant]
     Route: 065
  16. NORMAL SALINE [Concomitant]
     Dosage: 250 MG BOLUS
     Route: 065

REACTIONS (16)
  - Disease progression [Fatal]
  - Fall [Recovered/Resolved]
  - Disorientation [Recovered/Resolved]
  - Dysarthria [Recovered/Resolved]
  - Urinary incontinence [Unknown]
  - Condition aggravated [Unknown]
  - Nervous system disorder [Unknown]
  - Blood pressure decreased [Recovered/Resolved]
  - Dyspnoea exertional [Not Recovered/Not Resolved]
  - General physical health deterioration [Unknown]
  - Diarrhoea [Unknown]
  - Vomiting [Unknown]
  - Weight decreased [Unknown]
  - Pain [Recovered/Resolved]
  - Acne [Not Recovered/Not Resolved]
  - Skin irritation [Not Recovered/Not Resolved]
